FAERS Safety Report 17504994 (Version 1)
Quarter: 2020Q1

REPORT INFORMATION
  Report Type: Report from Study
  Country: US (occurrence: US)
  Receive Date: 20200305
  Receipt Date: 20200305
  Transmission Date: 20200409
  Serious: No
  Sender: FDA-Public Use
  Company Number: NVSC2020US063438

PATIENT
  Sex: Female

DRUGS (3)
  1. COSENTYX [Suspect]
     Active Substance: SECUKINUMAB
     Dosage: 300 MG, QW (FOURTH LOADING DOSE)
     Route: 058
     Dates: start: 20200130
  2. COSENTYX [Suspect]
     Active Substance: SECUKINUMAB
     Dosage: 300 MG, QW (FIRST MAINTAINENCE DOSE)
     Route: 058
     Dates: start: 20200229
  3. COSENTYX [Suspect]
     Active Substance: SECUKINUMAB
     Indication: PSORIASIS
     Dosage: 300 MG, QW (FIRST LOADING DOSE)
     Route: 058
     Dates: start: 20200109

REACTIONS (1)
  - Psoriasis [Unknown]
